FAERS Safety Report 24197813 (Version 3)
Quarter: 2024Q4

REPORT INFORMATION
  Report Type: Report from Study
  Country: US (occurrence: US)
  Receive Date: 20240811
  Receipt Date: 20241009
  Transmission Date: 20250115
  Serious: Yes (Hospitalization, Other)
  Sender: ABBVIE
  Company Number: US-ABBVIE-5871739

PATIENT
  Age: 73 Year
  Sex: Female
  Weight: 72 kg

DRUGS (19)
  1. SKYRIZI [Suspect]
     Active Substance: RISANKIZUMAB-RZAA
     Indication: Psoriatic arthropathy
     Route: 058
     Dates: start: 2023, end: 20240104
  2. SKYRIZI [Suspect]
     Active Substance: RISANKIZUMAB-RZAA
     Dosage: WEEK 0?STRENGTH: 150MG/ML
     Route: 058
     Dates: start: 20240406, end: 20240406
  3. SKYRIZI [Suspect]
     Active Substance: RISANKIZUMAB-RZAA
     Dosage: WEEK 4?STRENGTH: 150MG/ML
     Route: 058
     Dates: start: 202405, end: 202405
  4. SKYRIZI [Suspect]
     Active Substance: RISANKIZUMAB-RZAA
     Dosage: STRENGTH: 150MG/ML
     Route: 058
  5. LEVOTHYROXINE [Concomitant]
     Active Substance: LEVOTHYROXINE
     Indication: Hypothyroidism
     Dosage: 125 MCG Q AM
     Dates: start: 1990
  6. BACLOFEN [Concomitant]
     Active Substance: BACLOFEN
     Indication: Multiple sclerosis
     Dosage: 10MG TID,
     Dates: start: 1990
  7. BUPROPION [Concomitant]
     Active Substance: BUPROPION
     Indication: Prophylaxis
     Dosage: 300 MG Q AM,
     Dates: start: 1989
  8. MODAFINIL [Concomitant]
     Active Substance: MODAFINIL
     Indication: Multiple sclerosis
     Dosage: 200 MG Q AM AND 200 MG @ 1300 HRS, BEGUN 1998 FOR
  9. 4 aminopyridine [Concomitant]
     Indication: Product used for unknown indication
     Dosage: 12.5 MG Q AM AND 12.5 MG @1300 HRS, BEGUN 1992.
  10. FOLIC ACID [Concomitant]
     Active Substance: FOLIC ACID
     Indication: Product used for unknown indication
     Dosage: 1 MG Q AM, BEGUN 2022 WITH METHOTREXATE
  11. METOPROLOL [Concomitant]
     Active Substance: METOPROLOL
     Indication: Product used for unknown indication
     Dosage: 25 MG BID,
     Dates: start: 2021
  12. ESTRADIOL [Concomitant]
     Active Substance: ESTRADIOL
     Indication: Hormone replacement therapy
     Dosage: 2 MG Q AM, HRT
     Dates: start: 2000
  13. NAPROXEN [Concomitant]
     Active Substance: NAPROXEN
     Indication: Arthritis
     Dosage: 440 MG Q AM, 440 MG @ 1300 HRS, AND 220 MG Q HS, BEGUN 1992
     Dates: start: 1992
  14. CALCIUM CARBONATE [Concomitant]
     Active Substance: CALCIUM CARBONATE
     Indication: Product used for unknown indication
     Dosage: 1500 MG Q HS,
     Dates: start: 1995
  15. CHONDROITIN;GLUCOSAMINE [Concomitant]
     Indication: Supplementation therapy
     Dosage: 1500/1200MG, 2 Q HS,
  16. ASPIRIN [Concomitant]
     Active Substance: ASPIRIN
     Indication: Cardiovascular event prophylaxis
     Dosage: 81 MG Q HS, BEGUN 2022
  17. VITAMIN D [Concomitant]
     Active Substance: VITAMIN D NOS
     Indication: Product used for unknown indication
     Dosage: 5000 UNITS Q HS
     Dates: start: 2013
  18. TYLENOL [Concomitant]
     Active Substance: ACETAMINOPHEN
     Indication: Arthralgia
     Dosage: 1000 MG, 2 Q HS, BEGUN 2005
  19. MIRALAX [Concomitant]
     Active Substance: POLYETHYLENE GLYCOL 3350
     Indication: Product used for unknown indication
     Dosage: 17 GM Q HS FOR BOWEL REGULARITY, BEGUN 2023

REACTIONS (10)
  - Intestinal resection [Recovered/Resolved]
  - Vaginal prolapse [Unknown]
  - Laparotomy [Unknown]
  - Pain [Unknown]
  - Nausea [Unknown]
  - Decreased appetite [Unknown]
  - Abdominal rigidity [Unknown]
  - Abdominal rigidity [Unknown]
  - Tenderness [Unknown]
  - Peritonitis [Unknown]

NARRATIVE: CASE EVENT DATE: 20240212
